FAERS Safety Report 24753743 (Version 1)
Quarter: 2024Q4

REPORT INFORMATION
  Report Type: Spontaneous
  Country: US (occurrence: None)
  Receive Date: 20241218
  Receipt Date: 20241218
  Transmission Date: 20250114
  Serious: No
  Sender: Public
  Company Number: None

PATIENT
  Age: 78 Year
  Sex: Female
  Weight: 58.5 kg

DRUGS (10)
  1. DUTASTERIDE [Suspect]
     Active Substance: DUTASTERIDE
     Indication: Alopecia
     Dosage: 1 CAPSLULE FIVE DAYS A WEEK ORAL ?
     Route: 048
     Dates: start: 20240806, end: 20241216
  2. NP thyroi, [Concomitant]
  3. METOPROLOL [Concomitant]
     Active Substance: METOPROLOL
  4. Pacemsker [Concomitant]
  5. Amulet 500 mg [Concomitant]
  6. black currant oil [Concomitant]
  7. VITAMINS [Concomitant]
     Active Substance: VITAMINS
  8. MAGNESIUM [Concomitant]
     Active Substance: MAGNESIUM
  9. Algae Cal [Concomitant]
  10. BIOTIN [Concomitant]
     Active Substance: BIOTIN

REACTIONS (4)
  - Acne pustular [None]
  - Pruritus [None]
  - Erythema [None]
  - Therapy cessation [None]

NARRATIVE: CASE EVENT DATE: 20241202
